FAERS Safety Report 5385144-2 (Version None)
Quarter: 2007Q3

REPORT INFORMATION
  Report Type: 
  Country: None (occurrence: None)
  Receive Date: 20070712
  Receipt Date: 20070709
  Transmission Date: 20080115
  Serious: Yes (Life-Threatening)
  Sender: FDA-Public Use
  Company Number: US-ASTRAZENECA-2007UW16099

PATIENT
  Age: 57 Year
  Sex: Female

DRUGS (4)
  1. SEROQUEL [Suspect]
     Route: 048
     Dates: start: 20070501
  2. SEROQUEL [Suspect]
     Route: 048
     Dates: start: 20070707, end: 20070707
  3. SEROQUEL [Suspect]
     Route: 048
     Dates: start: 20070708
  4. DEPAKOTE [Concomitant]

REACTIONS (2)
  - HYPOTENSION [None]
  - UNRESPONSIVE TO STIMULI [None]
